FAERS Safety Report 16607029 (Version 3)
Quarter: 2019Q4

REPORT INFORMATION
  Report Type: Spontaneous
  Country: CA (occurrence: CA)
  Receive Date: 20190722
  Receipt Date: 20191126
  Transmission Date: 20200122
  Serious: Yes (Other)
  Sender: FDA-Public Use
  Company Number: CA-AUROBINDO-AUR-APL-2019-040852

PATIENT
  Age: 65 Year
  Sex: Female

DRUGS (15)
  1. GABAPENTIN. [Suspect]
     Active Substance: GABAPENTIN
     Indication: PRODUCT USED FOR UNKNOWN INDICATION
     Dosage: 300 MILLIGRAM, 3 TIMES A DAY
     Route: 065
  2. ESBRIET [Interacting]
     Active Substance: PIRFENIDONE
     Indication: IDIOPATHIC PULMONARY FIBROSIS
     Dosage: 267 MILLIGRAM, 3 TIMES A DAY
     Route: 048
  3. ESBRIET [Interacting]
     Active Substance: PIRFENIDONE
     Dosage: 534 MILLIGRAM, 3 TIMES A DAY
     Route: 048
  4. APO-CETIRIZINE [Concomitant]
     Active Substance: CETIRIZINE HYDROCHLORIDE
     Indication: PRODUCT USED FOR UNKNOWN INDICATION
     Dosage: 10 MILLIGRAM, ONCE A DAY
     Route: 065
  5. SPIRIVA [Concomitant]
     Active Substance: TIOTROPIUM BROMIDE MONOHYDRATE
     Indication: PRODUCT USED FOR UNKNOWN INDICATION
     Dosage: UNK
     Route: 065
  6. ESOMEPRAZOLE. [Concomitant]
     Active Substance: ESOMEPRAZOLE MAGNESIUM
     Indication: PRODUCT USED FOR UNKNOWN INDICATION
     Dosage: 40 MILLIGRAM, ONCE A DAY
     Route: 065
  7. CLONAZEPAM. [Concomitant]
     Active Substance: CLONAZEPAM
     Indication: PRODUCT USED FOR UNKNOWN INDICATION
     Dosage: 5.0 MILLIGRAM, ONCE A DAY
     Route: 065
  8. CIPROFLOXACIN. [Interacting]
     Active Substance: CIPROFLOXACIN
     Indication: PRODUCT USED FOR UNKNOWN INDICATION
     Dosage: 500 MILLIGRAM, TWO TIMES A DAY
     Route: 065
  9. CODEINE [Interacting]
     Active Substance: CODEINE
     Indication: PRODUCT USED FOR UNKNOWN INDICATION
     Dosage: 30 MILLIGRAM
     Route: 065
  10. ESBRIET [Interacting]
     Active Substance: PIRFENIDONE
     Dosage: 801 MILLIGRAM, 3 TIMES A DAY
     Route: 048
  11. CITALOPRAM [Concomitant]
     Active Substance: CITALOPRAM HYDROBROMIDE
     Indication: PRODUCT USED FOR UNKNOWN INDICATION
     Dosage: UNK
     Route: 065
  12. CIPROFLOXACIN. [Interacting]
     Active Substance: CIPROFLOXACIN
     Dosage: 750 MILLIGRAM, TWO TIMES A DAY
     Route: 065
  13. ESBRIET [Interacting]
     Active Substance: PIRFENIDONE
     Dosage: 801 MILLIGRAM
     Route: 048
  14. ADVAIR HFA [Concomitant]
     Active Substance: FLUTICASONE PROPIONATE\SALMETEROL XINAFOATE
     Indication: PRODUCT USED FOR UNKNOWN INDICATION
     Dosage: UNK
     Route: 065
  15. BUPROPION. [Concomitant]
     Active Substance: BUPROPION
     Indication: PRODUCT USED FOR UNKNOWN INDICATION
     Dosage: 150 MILLIGRAM, 3 TIMES A DAY
     Route: 065

REACTIONS (27)
  - Dyspnoea exertional [Not Recovered/Not Resolved]
  - Pain [Not Recovered/Not Resolved]
  - Pulmonary function test abnormal [Not Recovered/Not Resolved]
  - Sinusitis [Not Recovered/Not Resolved]
  - Decreased appetite [Not Recovered/Not Resolved]
  - Erythema [Not Recovered/Not Resolved]
  - Lower respiratory tract infection [Not Recovered/Not Resolved]
  - Nasal congestion [Not Recovered/Not Resolved]
  - Cough [Not Recovered/Not Resolved]
  - Depressed mood [Not Recovered/Not Resolved]
  - Gingivitis [Not Recovered/Not Resolved]
  - Influenza [Not Recovered/Not Resolved]
  - Rash [Not Recovered/Not Resolved]
  - Cold sweat [Not Recovered/Not Resolved]
  - Pulmonary function test decreased [Not Recovered/Not Resolved]
  - Fall [Not Recovered/Not Resolved]
  - Nausea [Not Recovered/Not Resolved]
  - Photosensitivity reaction [Not Recovered/Not Resolved]
  - Asthenia [Not Recovered/Not Resolved]
  - Fatigue [Not Recovered/Not Resolved]
  - Weight increased [Not Recovered/Not Resolved]
  - Sinus congestion [Not Recovered/Not Resolved]
  - Diarrhoea [Not Recovered/Not Resolved]
  - Headache [Not Recovered/Not Resolved]
  - Musculoskeletal chest pain [Not Recovered/Not Resolved]
  - Nasopharyngitis [Not Recovered/Not Resolved]
  - Drug interaction [Not Recovered/Not Resolved]
